FAERS Safety Report 22289494 (Version 2)
Quarter: 2023Q2

REPORT INFORMATION
  Report Type: Report from Study
  Country: US (occurrence: US)
  Receive Date: 20230505
  Receipt Date: 20230620
  Transmission Date: 20230721
  Serious: Yes (Hospitalization, Other)
  Sender: FDA-Public Use
  Company Number: US-MYLANLABS-2023M1047384

PATIENT
  Sex: Male
  Weight: 82.6 kg

DRUGS (5)
  1. CLOZAPINE [Suspect]
     Active Substance: CLOZAPINE
     Indication: Product used for unknown indication
     Dosage: UNK
     Route: 048
  2. CLOZAPINE [Suspect]
     Active Substance: CLOZAPINE
     Dosage: 425 MILLIGRAM QD (NIGHT)
     Route: 048
  3. CLOZAPINE [Suspect]
     Active Substance: CLOZAPINE
     Dosage: 100 MILLIGRAM, QD (AM)
     Route: 048
  4. HALDOL [Concomitant]
     Active Substance: HALOPERIDOL
     Dosage: 5 MILLIGRAM, BID
     Route: 065
  5. LITHIUM [Concomitant]
     Active Substance: LITHIUM
     Dosage: 750 MILLIGRAM, QD
     Route: 065

REACTIONS (7)
  - Hospitalisation [Unknown]
  - Cervical spinal stenosis [Unknown]
  - Schizophrenia [Unknown]
  - Fall [Unknown]
  - Gait disturbance [Unknown]
  - Benign prostatic hyperplasia [Unknown]
  - Hypertension [Unknown]
